FAERS Safety Report 15257016 (Version 1)
Quarter: 2018Q3

REPORT INFORMATION
  Report Type: Spontaneous
  Country: US (occurrence: US)
  Receive Date: 20180808
  Receipt Date: 20180808
  Transmission Date: 20181010
  Serious: Yes (Hospitalization)
  Sender: FDA-Public Use
  Company Number: US-MYLANLABS-2018M1060127

PATIENT
  Age: 63 Year
  Sex: Female

DRUGS (1)
  1. HYDROCORTISONE. [Suspect]
     Active Substance: HYDROCORTISONE
     Indication: METASTATIC RENAL CELL CARCINOMA
     Dosage: 30 MG DAILY IN DIVIDED DOSE
     Route: 048

REACTIONS (4)
  - Hyponatraemia [Recovering/Resolving]
  - Hypoglycaemia [Recovered/Resolved]
  - Unresponsive to stimuli [Recovered/Resolved]
  - Adrenal insufficiency [Unknown]
